FAERS Safety Report 9060357 (Version 3)
Quarter: 2013Q2

REPORT INFORMATION
  Report Type: Spontaneous
  Country: US (occurrence: US)
  Receive Date: 20130212
  Receipt Date: 20130627
  Transmission Date: 20140414
  Serious: Yes (Hospitalization, Disabling, Other)
  Sender: FDA-Public Use
  Company Number: US-009507513-1103USA00835

PATIENT
  Sex: Female
  Weight: 69.84 kg

DRUGS (3)
  1. FOSAMAX [Suspect]
     Indication: OSTEOPOROSIS
     Dosage: 10 MG, QD
     Route: 048
     Dates: start: 20000101, end: 20080617
  2. FOSAMAX [Suspect]
     Dosage: 70 MG, QW
     Route: 048
     Dates: start: 20080215
  3. CHANTIX [Concomitant]
     Indication: EX-TOBACCO USER
     Dosage: 0.5 MG, UNK
     Dates: start: 20070517

REACTIONS (37)
  - Femur fracture [Unknown]
  - Intramedullary rod insertion [Unknown]
  - Cholecystectomy [Unknown]
  - Spinal rod insertion [Unknown]
  - Surgery [Unknown]
  - Limb injury [Not Recovered/Not Resolved]
  - Lumbar spinal stenosis [Unknown]
  - Herpes zoster [Recovered/Resolved]
  - Sinusitis [Unknown]
  - Pneumonia [Unknown]
  - Thrombocytosis [Unknown]
  - Hypotension [Unknown]
  - Post procedural haemorrhage [Unknown]
  - Blood pressure increased [Unknown]
  - Spinal osteoarthritis [Unknown]
  - Osteoarthritis [Unknown]
  - Bronchitis [Unknown]
  - Rotator cuff syndrome [Unknown]
  - Depression [Unknown]
  - Hypotension [Unknown]
  - Essential hypertension [Unknown]
  - Appendicectomy [Unknown]
  - Asthma [Unknown]
  - Arthritis [Unknown]
  - Hyperlipidaemia [Unknown]
  - Osteopenia [Unknown]
  - Dyspnoea [Unknown]
  - Hypotension [Unknown]
  - Dermatitis contact [Unknown]
  - Body height increased [Unknown]
  - Anaemia [Unknown]
  - Eczema [Unknown]
  - Adverse drug reaction [Unknown]
  - Gastrooesophageal reflux disease [Unknown]
  - Gastric ulcer [Unknown]
  - Muscle spasms [Unknown]
  - Headache [Unknown]
